FAERS Safety Report 12807177 (Version 3)
Quarter: 2017Q4

REPORT INFORMATION
  Report Type: Spontaneous
  Country: US (occurrence: US)
  Receive Date: 20161004
  Receipt Date: 20171220
  Transmission Date: 20180320
  Serious: No
  Sender: FDA-Public Use
  Company Number: US-PFIZER INC-2016398677

PATIENT
  Age: 84 Year
  Sex: Female

DRUGS (2)
  1. IBRANCE [Suspect]
     Active Substance: PALBOCICLIB
     Indication: BREAST CANCER FEMALE
     Dosage: 75 MG, CYCLIC (1 CAPSULE BY MOUTH DAILY FOR 21 DAYS, THEN STOP FOR 7 DAYS, WITH FOOD)
     Route: 048
  2. IBRANCE [Suspect]
     Active Substance: PALBOCICLIB
     Dosage: 75 MG, DAILY FOR (21 DAYS)
     Route: 048

REACTIONS (4)
  - Drug dose omission [Unknown]
  - Malaise [Unknown]
  - Presyncope [Recovered/Resolved]
  - Pain [Unknown]
